FAERS Safety Report 15456601 (Version 4)
Quarter: 2018Q4

REPORT INFORMATION
  Report Type: Spontaneous
  Country: GB (occurrence: GB)
  Receive Date: 20181002
  Receipt Date: 20181102
  Transmission Date: 20190204
  Serious: Yes (Other)
  Sender: FDA-Public Use
  Company Number: GB-MYLANLABS-2018M1071163

PATIENT
  Sex: Female

DRUGS (5)
  1. DICLOFENAC [Interacting]
     Active Substance: DICLOFENAC
     Indication: ARTHRITIS
     Dosage: UNK
     Route: 065
  2. METHOTREXATE. [Interacting]
     Active Substance: METHOTREXATE
     Indication: JUVENILE IDIOPATHIC ARTHRITIS
     Dosage: 15 MG, 2 TOTAL, TWO OCCASIONS DURING EARLY PREGNANCY
     Route: 065
  3. LISINOPRIL. [Suspect]
     Active Substance: LISINOPRIL
     Indication: HYPERTENSION
     Dosage: UNK
     Route: 065
  4. DICLOFENAC [Interacting]
     Active Substance: DICLOFENAC
     Indication: ARTHRITIS
  5. PREDNISOLONE. [Interacting]
     Active Substance: PREDNISOLONE
     Indication: ARTHRITIS
     Dosage: UNK
     Route: 065

REACTIONS (3)
  - Oligohydramnios [Unknown]
  - Drug interaction [Unknown]
  - Exposure during pregnancy [Recovered/Resolved]
